FAERS Safety Report 5504882-1 (Version None)
Quarter: 2007Q4

REPORT INFORMATION
  Report Type: 
  Country: None (occurrence: None)
  Receive Date: 20071031
  Receipt Date: 20071017
  Transmission Date: 20080405
  Serious: Yes (Death)
  Sender: FDA-Public Use
  Company Number: 019891

PATIENT
  Age: 22 Year
  Sex: Female

DRUGS (2)
  1. CLARAVIS [Suspect]
     Indication: BRAIN NEOPLASM MALIGNANT
     Dosage: 3 CAPS., QD, ORAL; 4 CAPS., QD, ORAL
     Route: 048
     Dates: start: 20060708, end: 20060719
  2. CLARAVIS [Suspect]
     Indication: BRAIN NEOPLASM MALIGNANT
     Dosage: 3 CAPS., QD, ORAL; 4 CAPS., QD, ORAL
     Route: 048
     Dates: start: 20060720, end: 20060729

REACTIONS (1)
  - DEATH [None]
